FAERS Safety Report 6162454-2 (Version None)
Quarter: 2009Q2

REPORT INFORMATION
  Report Type: 
  Country: None (occurrence: None)
  Receive Date: 20090421
  Receipt Date: 20090414
  Transmission Date: 20091009
  Serious: Yes (Life-Threatening, Hospitalization, Other)
  Sender: FDA-Public Use
  Company Number: PHRM1999FR00417

PATIENT
  Sex: Male
  Weight: 64 kg

DRUGS (6)
  1. TAREG [Suspect]
     Indication: HYPERTENSION
     Dosage: 1 DF, QD
     Route: 048
     Dates: end: 19990430
  2. CORDARONE [Suspect]
     Dosage: 1 DF, QD
     Route: 048
  3. DETENSIEL [Suspect]
     Dosage: 0.5 DF, QD
     Route: 048
  4. LEXOMIL [Suspect]
     Dosage: 0.25 DF, QD
     Route: 048
  5. FERROUS SULFATE TAB [Concomitant]
     Indication: ANAEMIA
     Dosage: 2 DF/DAY
     Route: 048
  6. TAKETIAM [Concomitant]
     Dosage: 2 DF, QD
     Route: 048

REACTIONS (7)
  - BLOOD CREATININE INCREASED [None]
  - COOMBS TEST POSITIVE [None]
  - HAEMOGLOBINURIA [None]
  - HAEMOLYSIS [None]
  - HAEMOLYTIC ANAEMIA [None]
  - LUNG DISORDER [None]
  - REFRACTORY ANAEMIA [None]
